FAERS Safety Report 10380221 (Version 1)
Quarter: 2014Q3

REPORT INFORMATION
  Report Type: Spontaneous
  Country: US (occurrence: US)
  Receive Date: 20140813
  Receipt Date: 20140813
  Transmission Date: 20150326
  Serious: Yes (Other)
  Sender: FDA-Public Use
  Company Number: US-BRISTOL-MYERS SQUIBB COMPANY-21279336

PATIENT
  Age: 55 Year
  Sex: Male

DRUGS (1)
  1. ELIQUIS [Suspect]
     Active Substance: APIXABAN
     Dosage: DOSAGE FORM: 5 MG, BUT NOT SURE.

REACTIONS (2)
  - Cerebral artery thrombosis [Unknown]
  - Cardioversion [Unknown]
